FAERS Safety Report 11391531 (Version 1)
Quarter: 2015Q3

REPORT INFORMATION
  Report Type: Spontaneous
  Country: FR (occurrence: FR)
  Receive Date: 20150818
  Receipt Date: 20150818
  Transmission Date: 20151125
  Serious: Yes (Other)
  Sender: FDA-Public Use
  Company Number: FR-BAYER-2015-397121

PATIENT
  Age: 0 Year
  Sex: Male
  Weight: 4.25 kg

DRUGS (1)
  1. MIRENA [Suspect]
     Active Substance: LEVONORGESTREL
     Dosage: UNK
     Route: 064
     Dates: start: 20140924

REACTIONS (2)
  - Bradycardia foetal [None]
  - Foetal exposure during pregnancy [None]

NARRATIVE: CASE EVENT DATE: 20140924
